FAERS Safety Report 19355669 (Version 2)
Quarter: 2021Q2

REPORT INFORMATION
  Report Type: Spontaneous
  Country: JP (occurrence: JP)
  Receive Date: 20210602
  Receipt Date: 20210630
  Transmission Date: 20210717
  Serious: No
  Sender: FDA-Public Use
  Company Number: JP-AMGEN-JPNSP2021084364

PATIENT
  Sex: Male

DRUGS (3)
  1. PRALIA [Suspect]
     Active Substance: DENOSUMAB
     Indication: OSTEOPOROSIS
     Dosage: 60 MILLIGRAM
     Route: 058
     Dates: start: 20200421, end: 20200421
  2. EDIROL [Concomitant]
     Active Substance: ELDECALCITOL
     Dosage: 0.5 UG, QD
     Route: 048
     Dates: start: 20210428
  3. ASPARTATE CALCIUM [Concomitant]
     Active Substance: CALCIUM ASPARTATE
     Dosage: 200 MG, TID
     Route: 048
     Dates: start: 20210428

REACTIONS (1)
  - No adverse event [Unknown]
